FAERS Safety Report 21289971 (Version 1)
Quarter: 2022Q3

REPORT INFORMATION
  Report Type: Spontaneous
  Country: CN (occurrence: CN)
  Receive Date: 20220902
  Receipt Date: 20220902
  Transmission Date: 20221027
  Serious: Yes (Other)
  Sender: FDA-Public Use
  Company Number: CN-PFIZER INC-PV202200054857

PATIENT
  Age: 50 Year
  Sex: Female

DRUGS (3)
  1. CELECOXIB [Suspect]
     Active Substance: CELECOXIB
     Indication: Exostosis
     Dosage: 1 CAPSULE, 1X/DAY
     Route: 048
     Dates: start: 20220711, end: 20220711
  2. CELECOXIB [Suspect]
     Active Substance: CELECOXIB
     Indication: Bone pain
  3. TENG HUANG JIAN GU [Concomitant]
     Indication: Exostosis
     Dosage: 3 TABLETS, 2X/DAY
     Route: 048
     Dates: start: 20220711, end: 20220711

REACTIONS (4)
  - Erythema [Recovering/Resolving]
  - Face oedema [Recovering/Resolving]
  - Pruritus [Recovering/Resolving]
  - Off label use [Unknown]

NARRATIVE: CASE EVENT DATE: 20220712
